FAERS Safety Report 5043912-0 (Version None)
Quarter: 2006Q3

REPORT INFORMATION
  Report Type: 
  Country: None (occurrence: None)
  Receive Date: 20060706
  Receipt Date: 20060628
  Transmission Date: 20061208
  Serious: Yes (Other)
  Sender: FDA-Public Use
  Company Number: PHBS2006JP09831

PATIENT
  Age: 41 Year
  Sex: Female

DRUGS (1)
  1. DIOVAN [Suspect]
     Indication: HYPERTENSION
     Dosage: 40 MG/DAY
     Route: 048
     Dates: start: 20060610, end: 20060620

REACTIONS (4)
  - BLOOD CREATININE INCREASED [None]
  - RENAL IMPAIRMENT [None]
  - RENIN INCREASED [None]
  - RENOVASCULAR HYPERTENSION [None]
